FAERS Safety Report 5140523-3 (Version None)
Quarter: 2006Q4

REPORT INFORMATION
  Report Type: 
  Country: None (occurrence: None)
  Receive Date: 20061027
  Receipt Date: 20061027
  Transmission Date: 20070319
  Serious: Yes (Hospitalization, Other)
  Sender: FDA-Public Use
  Company Number: None

PATIENT
  Age: 38 Year
  Sex: Female
  Weight: 68.0396 kg

DRUGS (1)
  1. NEOSPORIN [Suspect]
     Indication: CELLULITIS
     Dosage: 3 X PER DAY TOP
     Route: 061
     Dates: start: 20060918, end: 20060922

REACTIONS (3)
  - CELLULITIS [None]
  - DRUG HYPERSENSITIVITY [None]
  - THERAPY NON-RESPONDER [None]
